FAERS Safety Report 6119858-3 (Version None)
Quarter: 2009Q1

REPORT INFORMATION
  Report Type: 
  Country: None (occurrence: None)
  Receive Date: 20090316
  Receipt Date: 20090304
  Transmission Date: 20090719
  Serious: Yes (Other)
  Sender: FDA-Public Use
  Company Number: PL-ROCHE-618964

PATIENT
  Sex: Female
  Weight: 76 kg

DRUGS (9)
  1. MIRCERA [Suspect]
     Route: 042
     Dates: start: 20081110
  2. MIRCERA [Suspect]
     Route: 042
     Dates: start: 20081210
  3. MIRCERA [Suspect]
     Route: 042
     Dates: start: 20090109
  4. MIRCERA [Suspect]
     Route: 042
     Dates: start: 20090212, end: 20090212
  5. INHIBACE [Concomitant]
     Dosage: FREQUENCY: 1X1 TABLET
     Route: 048
     Dates: start: 20081001
  6. VIT B1 [Concomitant]
     Indication: NEPHROPATHY
     Dosage: FREQUENCY: 3X1 TABLET
     Route: 048
     Dates: start: 20030501
  7. VIT B6 [Concomitant]
     Indication: NEPHROPATHY
     Dosage: FREQUENCY: 1X1 TABLET
     Route: 048
     Dates: start: 20030501
  8. ACIDUM FOLICUM [Concomitant]
     Indication: NEPHROPATHY
     Dosage: FREQUENCY: 1X1 TABLET
     Route: 048
     Dates: start: 20030501
  9. CALPEROS [Concomitant]
     Indication: NEPHROPATHY
     Dosage: FREQUENCY: 3X1 TABLET
     Route: 048
     Dates: start: 20030501

REACTIONS (2)
  - CEREBRAL ISCHAEMIA [None]
  - RASH PUSTULAR [None]
